FAERS Safety Report 5002862-6 (Version None)
Quarter: 2006Q2

REPORT INFORMATION
  Report Type: 
  Country: None (occurrence: None)
  Receive Date: 20060512
  Receipt Date: 20060502
  Transmission Date: 20061013
  Serious: Yes (Disabling)
  Sender: FDA-Public Use
  Company Number: FR20060500814

PATIENT
  Age: 48 Year
  Sex: Female

DRUGS (2)
  1. ZYPREXA [Suspect]
     Indication: PSYCHOTIC DISORDER
     Dosage: SEE IMAGE
     Route: 048
     Dates: start: 20050722, end: 20050727
  2. ZYPREXA [Suspect]
     Indication: PSYCHOTIC DISORDER
     Dosage: SEE IMAGE
     Route: 048
     Dates: start: 20050727, end: 20050729

REACTIONS (6)
  - CONDITION AGGRAVATED [None]
  - HALLUCINATION [None]
  - HEADACHE [None]
  - INTENTIONAL SELF-INJURY [None]
  - QUADRIPLEGIA [None]
  - SUICIDE ATTEMPT [None]
